FAERS Safety Report 4605790-0 (Version None)
Quarter: 2005Q1

REPORT INFORMATION
  Report Type: 
  Country: None (occurrence: None)
  Receive Date: 20050115
  Receipt Date: 20040930
  Transmission Date: 20050727
  Serious: Yes (Hospitalization)
  Sender: FDA-Public Use
  Company Number: A03200403335

PATIENT
  Age: 57 Year
  Sex: Female
  Weight: 44.4525 kg

DRUGS (2)
  1. AMBIEN [Suspect]
     Indication: INSOMNIA
     Dosage: ORAL  A FEW MONTHS
     Route: 048
     Dates: end: 20040601
  2. AMBIEN [Suspect]
     Indication: INSOMNIA
     Dosage: HIGHER DOSE (NOT SPECIFIED); ORAL
     Route: 048
     Dates: start: 20040601

REACTIONS (1)
  - SUICIDAL IDEATION [None]
